FAERS Safety Report 7704650 (Version 4)
Quarter: 2014Q4

REPORT INFORMATION
  Report Type: Spontaneous
  Country: US (occurrence: US)
  Receive Date: 20101213
  Receipt Date: 20141201
  Transmission Date: 20150529
  Serious: Yes (Hospitalization, Other)
  Sender: FDA-Public Use
  Company Number: US-ROCHE-724522

PATIENT
  Age: 26 Year
  Sex: Male
  Weight: 90.7 kg

DRUGS (2)
  1. ACCUTANE [Suspect]
     Active Substance: ISOTRETINOIN
     Route: 048
     Dates: start: 199705, end: 199711
  2. ACCUTANE [Suspect]
     Active Substance: ISOTRETINOIN
     Indication: ACNE
     Route: 048

REACTIONS (15)
  - Anal fissure [Unknown]
  - Nausea [Unknown]
  - Gastrointestinal haemorrhage [Unknown]
  - Colitis ulcerative [Unknown]
  - Perirectal abscess [Unknown]
  - Oral herpes [Unknown]
  - Crohn^s disease [Unknown]
  - Intestinal obstruction [Unknown]
  - Nephrolithiasis [Unknown]
  - Rectal haemorrhage [Unknown]
  - Anal fistula [Unknown]
  - Depression [Unknown]
  - Inflammatory bowel disease [Unknown]
  - Pyoderma gangrenosum [Unknown]
  - Abdominal pain [Unknown]

NARRATIVE: CASE EVENT DATE: 1994
